FAERS Safety Report 4683657-X (Version None)
Quarter: 2005Q2

REPORT INFORMATION
  Report Type: 
  Country: None (occurrence: None)
  Receive Date: 20050607
  Receipt Date: 20050523
  Transmission Date: 20051028
  Serious: Yes (Disabling)
  Sender: FDA-Public Use
  Company Number: GB-JNJFOC-20050503022

PATIENT
  Sex: Female

DRUGS (6)
  1. DURAGESIC-100 [Suspect]
     Route: 062
  2. DURAGESIC-100 [Suspect]
     Route: 062
  3. XIPAMIDE [Concomitant]
     Route: 065
  4. DOMPERIDONE [Concomitant]
     Route: 065
  5. CETIRIZINE HCL [Concomitant]
     Route: 065
  6. TAMOXIFEN [Concomitant]
     Indication: BREAST CANCER
     Route: 065

REACTIONS (4)
  - FALL [None]
  - INTENTIONAL MISUSE [None]
  - PELVIC FRACTURE [None]
  - SEDATION [None]
